FAERS Safety Report 7540550-2 (Version None)
Quarter: 2011Q2

REPORT INFORMATION
  Report Type: 
  Country: None (occurrence: None)
  Receive Date: 20110610
  Receipt Date: 20110520
  Transmission Date: 20111010
  Serious: Yes (Other)
  Sender: FDA-Public Use
  Company Number: B0722410A

PATIENT
  Sex: Female
  Weight: 67 kg

DRUGS (8)
  1. PANTOPRAZOLE [Concomitant]
     Dosage: 40MG PER DAY
     Dates: start: 20090601
  2. VERAPAMIL [Concomitant]
     Dosage: 240MG PER DAY
     Dates: start: 20100101
  3. LIPITOR [Concomitant]
     Dosage: 20MG PER DAY
     Dates: start: 20090101
  4. METFORMIN HCL [Concomitant]
     Dosage: 500MG PER DAY
     Dates: start: 20090501
  5. AVAMYS [Suspect]
     Indication: RHINITIS ALLERGIC
     Route: 065
     Dates: start: 20110506, end: 20110513
  6. ACTOS [Concomitant]
     Dosage: 15MG PER DAY
     Dates: start: 20090601
  7. LISINOPRIL [Concomitant]
     Dosage: 20MG PER DAY
     Dates: start: 20091001
  8. GLIPIZIDE [Concomitant]
     Dosage: 5MG PER DAY
     Dates: start: 20090301

REACTIONS (1)
  - DIZZINESS [None]
